FAERS Safety Report 9943293 (Version 2)
Quarter: 2014Q1

REPORT INFORMATION
  Report Type: Spontaneous
  Country: NZ (occurrence: NZ)
  Receive Date: 20140303
  Receipt Date: 20140320
  Transmission Date: 20141002
  Serious: Yes (Life-Threatening, Hospitalization)
  Sender: FDA-Public Use
  Company Number: NZ-B.I. PHARMACEUTICALS,INC./RIDGEFIELD-2014-BI-09079AU

PATIENT
  Age: 54 Year
  Sex: Female
  Weight: 120 kg

DRUGS (20)
  1. PRADAXA [Suspect]
     Indication: ATRIAL FIBRILLATION
     Dosage: 300 MG
     Route: 065
     Dates: start: 20130504, end: 20130711
  2. FRUSEMIDE [Concomitant]
     Dosage: 240 MG
     Route: 065
  3. METOPROLOL [Concomitant]
     Dosage: 190 MG
     Route: 065
  4. QUINAPRIL [Concomitant]
     Dosage: 40 MG
     Route: 065
  5. SPIRONOLACTONE [Concomitant]
     Dosage: 12.5 MG
     Route: 065
  6. DILTIAZEM [Concomitant]
     Dosage: 120 MG
     Route: 065
  7. DIGOXIN [Concomitant]
     Route: 065
  8. GLICLAZIDE [Concomitant]
     Route: 065
  9. ATORVASTATIN [Concomitant]
     Route: 065
  10. RISPERIDONE [Concomitant]
     Route: 065
  11. ZOPICLONE [Concomitant]
     Route: 065
  12. LORAZEPAM [Concomitant]
     Route: 065
  13. SERTRALINE [Concomitant]
     Route: 065
  14. OXYBUTININ [Concomitant]
     Route: 065
  15. OMEPRAZOLE [Concomitant]
     Route: 065
  16. METFORMIN [Concomitant]
     Route: 065
  17. SERETIDE [Concomitant]
     Route: 065
  18. LACTULOSE [Concomitant]
     Route: 065
  19. SALBUTAMOL [Concomitant]
     Route: 065
  20. PARACETAMOL [Concomitant]
     Route: 065

REACTIONS (4)
  - Gastrointestinal haemorrhage [Recovered/Resolved]
  - Melaena [Recovered/Resolved]
  - Renal failure [Not Recovered/Not Resolved]
  - Vaginal haemorrhage [Recovered/Resolved]
